FAERS Safety Report 14476600 (Version 1)
Quarter: 2018Q1

REPORT INFORMATION
  Report Type: Spontaneous
  Country: US (occurrence: US)
  Receive Date: 20180201
  Receipt Date: 20180201
  Transmission Date: 20180509
  Serious: No
  Sender: FDA-Public Use
  Company Number: US-SA-2017SA238136

PATIENT
  Age: 75 Year
  Sex: Female
  Weight: 127 kg

DRUGS (2)
  1. PRALUENT [Suspect]
     Active Substance: ALIROCUMAB
     Indication: BLOOD CHOLESTEROL INCREASED
     Route: 058
     Dates: start: 20171102
  2. ALIROCUMAB PREFILLED PEN [Suspect]
     Active Substance: ALIROCUMAB
     Indication: BLOOD CHOLESTEROL INCREASED
     Dates: start: 20171102

REACTIONS (5)
  - Dizziness [Recovered/Resolved]
  - Nausea [Recovered/Resolved]
  - Arthralgia [Recovered/Resolved]
  - Underdose [Unknown]
  - Device issue [Unknown]

NARRATIVE: CASE EVENT DATE: 201711
